FAERS Safety Report 13448669 (Version 1)
Quarter: 2017Q2

REPORT INFORMATION
  Report Type: Spontaneous
  Country: BR (occurrence: BR)
  Receive Date: 20170417
  Receipt Date: 20170417
  Transmission Date: 20170830
  Serious: Yes (Life-Threatening, Hospitalization, Other)
  Sender: FDA-Public Use
  Company Number: BR-BAYER-2016-178170

PATIENT
  Age: 29 Year
  Sex: Female

DRUGS (2)
  1. MIRENA [Suspect]
     Active Substance: LEVONORGESTREL
     Indication: MENSTRUAL CYCLE MANAGEMENT
  2. MIRENA [Suspect]
     Active Substance: LEVONORGESTREL
     Indication: CONTRACEPTION
     Dosage: 20 MCG/24HR, CONT
     Route: 015
     Dates: start: 20130809, end: 20160908

REACTIONS (9)
  - Drug ineffective [None]
  - Amenorrhoea [Recovered/Resolved]
  - Abdominal pain lower [Recovered/Resolved]
  - Vaginal discharge [None]
  - Haemorrhage in pregnancy [Recovered/Resolved]
  - Vaginal haemorrhage [None]
  - Uterine leiomyoma [None]
  - Ectopic pregnancy with contraceptive device [Recovered/Resolved]
  - Pelvic pain [Recovered/Resolved]

NARRATIVE: CASE EVENT DATE: 201608
